FAERS Safety Report 12334450 (Version 3)
Quarter: 2017Q1

REPORT INFORMATION
  Report Type: Spontaneous
  Country: DK (occurrence: DK)
  Receive Date: 20160504
  Receipt Date: 20170329
  Transmission Date: 20170428
  Serious: Yes (Other)
  Sender: FDA-Public Use
  Company Number: DK-ELI_LILLY_AND_COMPANY-DK201604010665

PATIENT
  Sex: Female

DRUGS (10)
  1. QUETIAPINE. [Concomitant]
     Active Substance: QUETIAPINE
     Indication: PRODUCT USED FOR UNKNOWN INDICATION
     Dosage: UNK, UNKNOWN
     Route: 065
  2. ZYPREXA [Suspect]
     Active Substance: OLANZAPINE
     Dosage: 30 MG, QD
     Route: 065
     Dates: start: 2016
  3. ZYPREXA [Suspect]
     Active Substance: OLANZAPINE
     Dosage: 30 MG, UNKNOWN
     Route: 065
     Dates: start: 20160408
  4. ZYPREXA [Suspect]
     Active Substance: OLANZAPINE
     Dosage: 15 MG, UNKNOWN
     Route: 065
     Dates: start: 20160725
  5. ALCOHOL. [Suspect]
     Active Substance: ALCOHOL
     Indication: PRODUCT USED FOR UNKNOWN INDICATION
     Dosage: UNK, UNKNOWN
     Route: 065
  6. ZYPREXA [Suspect]
     Active Substance: OLANZAPINE
     Dosage: 20 MG, UNKNOWN
     Route: 065
     Dates: start: 20160303
  7. ZYPREXA [Suspect]
     Active Substance: OLANZAPINE
     Dosage: 10 MG, QD
     Route: 065
     Dates: start: 2016
  8. OLANZAPINE. [Suspect]
     Active Substance: OLANZAPINE
     Indication: SCHIZOPHRENIA
     Dosage: 10 MG, UNK
  9. OLANZAPINE. [Suspect]
     Active Substance: OLANZAPINE
     Indication: SEDATIVE THERAPY
     Dosage: 5 MG, UNKNOWN
     Route: 065
  10. ZYPREXA [Suspect]
     Active Substance: OLANZAPINE
     Indication: SCHIZOPHRENIA
     Dosage: 5 MG, BID
     Route: 065
     Dates: start: 2015

REACTIONS (31)
  - Drug dose omission [Unknown]
  - Decreased interest [Unknown]
  - Insomnia [Unknown]
  - Irritability [Unknown]
  - Emotional distress [Unknown]
  - Visual impairment [Unknown]
  - Delusion [Unknown]
  - Pain [Unknown]
  - Restlessness [Unknown]
  - Abnormal behaviour [Unknown]
  - Overdose [Unknown]
  - Mood swings [Unknown]
  - Tachyphrenia [Unknown]
  - Aggression [Unknown]
  - Increased appetite [Unknown]
  - Somnolence [Unknown]
  - Asthenia [Unknown]
  - Haematochezia [Unknown]
  - Speech disorder [Unknown]
  - Acne [Unknown]
  - Hallucination, visual [Unknown]
  - Feeling abnormal [Unknown]
  - Urinary incontinence [Unknown]
  - Constipation [Unknown]
  - Dyskinesia [Unknown]
  - Homicidal ideation [Unknown]
  - Face oedema [Unknown]
  - Hypersomnia [Unknown]
  - Suicidal ideation [Unknown]
  - Persecutory delusion [Unknown]
  - Screaming [Unknown]
